FAERS Safety Report 25149932 (Version 1)
Quarter: 2025Q2

REPORT INFORMATION
  Report Type: Spontaneous
  Country: US (occurrence: None)
  Receive Date: 20250401
  Receipt Date: 20250401
  Transmission Date: 20250717
  Serious: Yes (Death)
  Sender: FDA-CTU
  Company Number: None

PATIENT
  Age: 59 Year
  Sex: Male

DRUGS (2)
  1. TEMOZOLOMIDE [Suspect]
     Active Substance: TEMOZOLOMIDE
     Indication: Lung carcinoma cell type unspecified stage 0
     Dosage: 10  MG DAILY ORAL
     Route: 048
     Dates: start: 20241217
  2. TEMOZOLOMIDE [Suspect]
     Active Substance: TEMOZOLOMIDE
     Indication: Lung carcinoma cell type unspecified stage 0
     Dosage: 140 MG DAILY ORAL
     Route: 048
     Dates: start: 20241216

REACTIONS (1)
  - Death [None]

NARRATIVE: CASE EVENT DATE: 20250314
